FAERS Safety Report 6096335-X (Version None)
Quarter: 2009Q1

REPORT INFORMATION
  Report Type: 
  Country: None (occurrence: None)
  Receive Date: 20090227
  Receipt Date: 20081201
  Transmission Date: 20090719
  Serious: No
  Sender: FDA-Public Use
  Company Number: A0756476A

PATIENT
  Age: 44 Year
  Sex: Female
  Weight: 47.3 kg

DRUGS (2)
  1. LAMICTAL [Suspect]
     Indication: BIPOLAR DISORDER
     Route: 048
     Dates: start: 20061024, end: 20080922
  2. NO CONCURRENT MEDICATION [Concomitant]

REACTIONS (1)
  - GENITAL HAEMORRHAGE [None]
